FAERS Safety Report 8238618-0 (Version None)
Quarter: 2012Q1

REPORT INFORMATION
  Report Type: 
  Country: None (occurrence: None)
  Receive Date: 20120327
  Receipt Date: 20120323
  Transmission Date: 20120608
  Serious: Yes (Other)
  Sender: FDA-Public Use
  Company Number: US-PFIZER INC-2012076175

PATIENT
  Sex: Male
  Weight: 79 kg

DRUGS (1)
  1. LIPITOR [Suspect]
     Indication: BLOOD CHOLESTEROL INCREASED
     Dosage: UNK, 1X/DAY
     Route: 048
     Dates: start: 20120101, end: 20120201

REACTIONS (4)
  - BACK DISORDER [None]
  - BACK PAIN [None]
  - GAIT DISTURBANCE [None]
  - BLOOD TEST ABNORMAL [None]
